FAERS Safety Report 11119481 (Version 7)
Quarter: 2018Q1

REPORT INFORMATION
  Report Type: Report from Study
  Country: US (occurrence: US)
  Receive Date: 20150518
  Receipt Date: 20180112
  Transmission Date: 20180508
  Serious: Yes (Other)
  Sender: FDA-Public Use
  Company Number: US-ASTELLAS-2015US016229

PATIENT
  Age: 89 Year
  Sex: Male

DRUGS (2)
  1. SOLIFENACIN [Suspect]
     Active Substance: SOLIFENACIN
     Indication: HYPERTONIC BLADDER
     Route: 048
     Dates: start: 2013
  2. SOLIFENACIN [Suspect]
     Active Substance: SOLIFENACIN
     Indication: BLADDER DISORDER
     Route: 048
     Dates: start: 20140304

REACTIONS (6)
  - Micturition urgency [Unknown]
  - Discomfort [Unknown]
  - Spinal fracture [Recovering/Resolving]
  - Fall [Recovered/Resolved]
  - Pollakiuria [Unknown]
  - Off label use [Unknown]

NARRATIVE: CASE EVENT DATE: 201501
